FAERS Safety Report 13461226 (Version 2)
Quarter: 2017Q3

REPORT INFORMATION
  Report Type: Spontaneous
  Country: US (occurrence: US)
  Receive Date: 20170420
  Receipt Date: 20170814
  Transmission Date: 20171127
  Serious: Yes (Life-Threatening, Other)
  Sender: FDA-Public Use
  Company Number: US-JNJFOC-20170413458

PATIENT
  Age: 37 Year
  Sex: Female

DRUGS (2)
  1. LOPERAMIDE [Suspect]
     Active Substance: LOPERAMIDE
     Route: 048
  2. LOPERAMIDE [Suspect]
     Active Substance: LOPERAMIDE
     Indication: SUICIDE ATTEMPT
     Dosage: OVER 200 TABLETS
     Route: 048

REACTIONS (6)
  - Ventricular arrhythmia [Unknown]
  - Cardiomyopathy [Unknown]
  - Intentional overdose [Unknown]
  - Toxicity to various agents [Unknown]
  - Electrocardiogram QT prolonged [Recovered/Resolved]
  - Loss of consciousness [Recovered/Resolved]
